FAERS Safety Report 10873603 (Version 1)
Quarter: 2015Q1

REPORT INFORMATION
  Report Type: Spontaneous
  Country: JP (occurrence: JP)
  Receive Date: 20150227
  Receipt Date: 20150227
  Transmission Date: 20150721
  Serious: Yes (Other)
  Sender: FDA-Public Use
  Company Number: JP-PFIZER INC-2015069202

PATIENT

DRUGS (7)
  1. ZOSYN [Suspect]
     Active Substance: PIPERACILLIN SODIUM\TAZOBACTAM SODIUM
     Indication: UTERINE CONTRACTIONS DURING PREGNANCY
     Dosage: UNK
     Route: 064
  2. CEFTAZIDIME. [Suspect]
     Active Substance: CEFTAZIDIME
     Indication: UTERINE CONTRACTIONS DURING PREGNANCY
     Route: 064
  3. AMPICILLIN TRIHYDRATE. [Suspect]
     Active Substance: AMPICILLIN TRIHYDRATE
     Indication: UTERINE CONTRACTIONS DURING PREGNANCY
     Route: 064
  4. CEFMETAZOLE SODIUM [Suspect]
     Active Substance: CEFMETAZOLE SODIUM
     Indication: UTERINE CONTRACTIONS DURING PREGNANCY
     Route: 064
  5. CILASTATIN SODIUM W/IMIPENEM [Suspect]
     Active Substance: CILASTATIN SODIUM\IMIPENEM
     Indication: UTERINE CONTRACTIONS DURING PREGNANCY
     Route: 064
  6. FLOMOXEF SODIUM [Suspect]
     Active Substance: FLOMOXEF SODIUM
     Indication: UTERINE CONTRACTIONS DURING PREGNANCY
     Route: 064
  7. AMPICILLIN SODIUM/SULBACTAM SODIUM [Suspect]
     Active Substance: AMPICILLIN SODIUM\SULBACTAM SODIUM
     Indication: UTERINE CONTRACTIONS DURING PREGNANCY
     Route: 064

REACTIONS (10)
  - Cervix disorder [None]
  - Genital haemorrhage [None]
  - Condition aggravated [None]
  - Post procedural inflammation [None]
  - Premature baby [Unknown]
  - Caesarean section [None]
  - Procedural haemorrhage [None]
  - Placental infarction [None]
  - Maternal exposure during pregnancy [Unknown]
  - Uterine contractions during pregnancy [None]
